FAERS Safety Report 20502320 (Version 1)
Quarter: 2022Q1

REPORT INFORMATION
  Report Type: Spontaneous
  Country: US (occurrence: US)
  Receive Date: 20220222
  Receipt Date: 20220222
  Transmission Date: 20220423
  Serious: No
  Sender: FDA-Public Use
  Company Number: US-NOVOPROD-832788

PATIENT
  Age: 59 Year
  Sex: Female

DRUGS (2)
  1. SAXENDA [Suspect]
     Active Substance: LIRAGLUTIDE
     Dosage: 3 MG, QD
     Route: 058
     Dates: start: 20210601
  2. SAXENDA [Suspect]
     Active Substance: LIRAGLUTIDE
     Indication: Insulin resistance
     Dosage: 1.8 MG, QD
     Route: 058

REACTIONS (5)
  - COVID-19 [Unknown]
  - Decreased appetite [Not Recovered/Not Resolved]
  - Weight increased [Unknown]
  - Glucose tolerance impaired [Unknown]
  - Off label use [Unknown]

NARRATIVE: CASE EVENT DATE: 20210101
